FAERS Safety Report 15491896 (Version 1)
Quarter: 2018Q4

REPORT INFORMATION
  Report Type: Spontaneous
  Country: US (occurrence: US)
  Receive Date: 20181011
  Receipt Date: 20181011
  Transmission Date: 20190205
  Serious: Yes (Other)
  Sender: FDA-Public Use
  Company Number: None

PATIENT
  Age: 52 Year
  Sex: Female
  Weight: 121.5 kg

DRUGS (22)
  1. MEDROL [Concomitant]
     Active Substance: METHYLPREDNISOLONE
  2. MULTI VITAMIN [Concomitant]
     Active Substance: VITAMINS
  3. TUMERIC ROOT EXTRACT [Concomitant]
  4. WELLBUTRIN [Concomitant]
     Active Substance: BUPROPION HYDROCHLORIDE
  5. NEXIUM [Concomitant]
     Active Substance: ESOMEPRAZOLE MAGNESIUM
  6. CALCIUM WITH D [Concomitant]
     Active Substance: CALCIUM\VITAMIN D
  7. CYMBALTA [Concomitant]
     Active Substance: DULOXETINE HYDROCHLORIDE
  8. PEPCID [Concomitant]
     Active Substance: FAMOTIDINE
  9. FIORCET [Concomitant]
  10. VITAMIN D [Concomitant]
     Active Substance: CHOLECALCIFEROL
  11. RITALIN [Concomitant]
     Active Substance: METHYLPHENIDATE HYDROCHLORIDE
  12. NIFEDIPINE. [Concomitant]
     Active Substance: NIFEDIPINE
  13. BENTYL [Concomitant]
     Active Substance: DICYCLOMINE HYDROCHLORIDE
  14. ZINC. [Concomitant]
     Active Substance: ZINC
  15. ELDERBERRY [Concomitant]
     Active Substance: HERBALS
  16. CELLCEPT [Concomitant]
     Active Substance: MYCOPHENOLATE MOFETIL\MYCOPHENOLATE MOFETIL HYDROCHLORIDE
  17. ABILIFY [Concomitant]
     Active Substance: ARIPIPRAZOLE
  18. LEFLUNOMIDE. [Suspect]
     Active Substance: LEFLUNOMIDE
     Indication: SYSTEMIC LUPUS ERYTHEMATOSUS
     Dosage: ?          QUANTITY:1 TABLET(S);?
     Route: 048
  19. NORVASC [Concomitant]
     Active Substance: AMLODIPINE BESYLATE
  20. METOCLOPRAMIDE. [Concomitant]
     Active Substance: METOCLOPRAMIDE
  21. BACLOFEN. [Concomitant]
     Active Substance: BACLOFEN
  22. CARAFATE [Concomitant]
     Active Substance: SUCRALFATE

REACTIONS (4)
  - Ligament rupture [None]
  - Gait inability [None]
  - Tendon rupture [None]
  - Meniscus injury [None]

NARRATIVE: CASE EVENT DATE: 20180713
